FAERS Safety Report 24189722 (Version 2)
Quarter: 2024Q4

REPORT INFORMATION
  Report Type: Spontaneous
  Country: CN (occurrence: CN)
  Receive Date: 20240808
  Receipt Date: 20241008
  Transmission Date: 20250115
  Serious: Yes (Life-Threatening, Other)
  Sender: BAYER
  Company Number: CN-BAYER-2024A114319

PATIENT
  Age: 81 Year
  Sex: Male
  Weight: 54 kg

DRUGS (2)
  1. ULTRAVIST [Suspect]
     Active Substance: IOPROMIDE
     Indication: Computerised tomogram abdomen
     Dosage: 100 ML, ONCE
     Route: 041
     Dates: start: 20240806, end: 20240806
  2. SODIUM CHLORIDE [Concomitant]
     Active Substance: SODIUM CHLORIDE
     Indication: Vehicle solution use
     Dosage: 500 ML, ONCE, ST
     Route: 041
     Dates: start: 20240806, end: 20240806

REACTIONS (7)
  - Anaphylactic shock [Recovering/Resolving]
  - Rash erythematous [Recovering/Resolving]
  - Cold sweat [Recovering/Resolving]
  - Blood pressure decreased [Recovering/Resolving]
  - Erythema [None]
  - Heart rate increased [Recovering/Resolving]
  - Respiratory rate increased [None]

NARRATIVE: CASE EVENT DATE: 20240806
